FAERS Safety Report 12798966 (Version 1)
Quarter: 2016Q3

REPORT INFORMATION
  Report Type: Spontaneous
  Country: US (occurrence: US)
  Receive Date: 20160930
  Receipt Date: 20160930
  Transmission Date: 20161109
  Serious: Yes (Death)
  Sender: FDA-Public Use
  Company Number: US-PFIZER INC-2016442513

PATIENT
  Age: 68 Year
  Sex: Male
  Weight: 62.6 kg

DRUGS (1)
  1. SUTENT [Suspect]
     Active Substance: SUNITINIB MALATE
     Indication: CLEAR CELL RENAL CELL CARCINOMA
     Dosage: 50 MG, CYCLIC (50MG CAPSULE ONE A DAY FOR TWO WEEKS AND THEN A WEEK OFF )

REACTIONS (1)
  - Death [Fatal]
